FAERS Safety Report 6045552-3 (Version None)
Quarter: 2009Q1

REPORT INFORMATION
  Report Type: 
  Country: None (occurrence: None)
  Receive Date: 20090121
  Receipt Date: 20090116
  Transmission Date: 20090719
  Serious: Yes (Hospitalization)
  Sender: FDA-Public Use
  Company Number: B0555129A

PATIENT
  Age: 65 Year
  Sex: Female

DRUGS (2)
  1. FLIXOTAIDE [Suspect]
     Indication: PULMONARY EMBOLISM
     Dates: start: 20090101, end: 20090101
  2. FORADIL [Concomitant]

REACTIONS (2)
  - EPISTAXIS [None]
  - HAEMOGLOBIN DECREASED [None]
